FAERS Safety Report 8790743 (Version 1)
Quarter: 2012Q4

REPORT INFORMATION
  Report Type: Spontaneous
  Country: GB (occurrence: None)
  Receive Date: 20120911
  Receipt Date: 20120911
  Transmission Date: 20130627
  Serious: Yes (Hospitalization)
  Sender: FDA-Public Use
  Company Number: GB-BANPHARM-20120102

PATIENT
  Age: 83 Year
  Sex: Female

DRUGS (8)
  1. IBUPROFEN [Suspect]
     Indication: PAIN
     Route: 048
     Dates: start: 20120107, end: 20120108
  2. CALCICHEW D3 [Concomitant]
  3. CLOMETHIAZOLE [Concomitant]
  4. CORSODYL [Concomitant]
  5. DOCUSATE [Concomitant]
  6. LACTULOSE [Concomitant]
  7. OMEPRAZOLE [Concomitant]
  8. RISEDRONATE [Concomitant]

REACTIONS (1)
  - Duodenal ulcer [None]
